FAERS Safety Report 15083267 (Version 1)
Quarter: 2018Q2

REPORT INFORMATION
  Report Type: Spontaneous
  Country: FR (occurrence: FR)
  Receive Date: 20180628
  Receipt Date: 20180628
  Transmission Date: 20180711
  Serious: Yes (Hospitalization)
  Sender: FDA-Public Use
  Company Number: FR-PFIZER INC-2018255690

PATIENT
  Age: 57 Year
  Sex: Female

DRUGS (2)
  1. CEFAZOLINE MYLAN [Suspect]
     Active Substance: CEFAZOLIN SODIUM
     Indication: STAPHYLOCOCCAL BACTERAEMIA
     Dosage: 10 G, 1X/DAY
     Route: 042
     Dates: start: 20180415, end: 20180503
  2. DALACINE [Suspect]
     Active Substance: CLINDAMYCIN HYDROCHLORIDE
     Indication: ENDOCARDITIS
     Dosage: 600 MG, 1X/DAY
     Dates: start: 20180420, end: 20180503

REACTIONS (2)
  - Vascular purpura [Recovering/Resolving]
  - Skin exfoliation [Recovering/Resolving]

NARRATIVE: CASE EVENT DATE: 20180501
